FAERS Safety Report 18559131 (Version 1)
Quarter: 2020Q4

REPORT INFORMATION
  Report Type: Spontaneous
  Country: FR (occurrence: FR)
  Receive Date: 20201130
  Receipt Date: 20201130
  Transmission Date: 20210114
  Serious: Yes (Other)
  Sender: FDA-Public Use
  Company Number: FR-PFIZER INC-2020457699

PATIENT
  Age: 54 Year

DRUGS (2)
  1. DACARBAZINE. [Suspect]
     Active Substance: DACARBAZINE
     Indication: NEOPLASM
     Dosage: UNK, CYCLIC
  2. EPIRUBICIN HCL [Suspect]
     Active Substance: EPIRUBICIN HYDROCHLORIDE
     Indication: NEOPLASM
     Dosage: UNK, CYCLIC

REACTIONS (2)
  - Neoplasm progression [Unknown]
  - Asthenia [Unknown]
